FAERS Safety Report 25340163 (Version 1)
Quarter: 2025Q2

REPORT INFORMATION
  Report Type: Spontaneous
  Country: GB (occurrence: GB)
  Receive Date: 20250521
  Receipt Date: 20250521
  Transmission Date: 20250717
  Serious: Yes (Other)
  Sender: AUROBINDO
  Company Number: GB-MHRA-MED-202505121601263150-QFJTR

PATIENT
  Age: 70 Year
  Sex: Male

DRUGS (1)
  1. FINASTERIDE [Suspect]
     Active Substance: FINASTERIDE
     Indication: Adverse drug reaction
     Route: 065

REACTIONS (1)
  - Spermatozoa abnormal [Not Recovered/Not Resolved]
